FAERS Safety Report 8127885-X (Version None)
Quarter: 2012Q1

REPORT INFORMATION
  Report Type: 
  Country: None (occurrence: None)
  Receive Date: 20120210
  Receipt Date: 20111205
  Transmission Date: 20120608
  Serious: No
  Sender: FDA-Public Use
  Company Number: US-GLAXOSMITHKLINE-A0956687A

PATIENT
  Sex: Female

DRUGS (1)
  1. PAROXETINE [Suspect]
     Route: 048

REACTIONS (4)
  - PARAESTHESIA [None]
  - WITHDRAWAL SYNDROME [None]
  - PERFORMANCE STATUS DECREASED [None]
  - PAIN [None]
